FAERS Safety Report 9102446 (Version 1)
Quarter: 2013Q1

REPORT INFORMATION
  Report Type: Spontaneous
  Country: DE (occurrence: DE)
  Receive Date: 20130219
  Receipt Date: 20130219
  Transmission Date: 20140127
  Serious: Yes (Other)
  Sender: FDA-Public Use
  Company Number: DE-JNJFOC-20130206092

PATIENT
  Sex: Male

DRUGS (2)
  1. DOLORMIN EXTRA [Suspect]
     Route: 048
  2. DOLORMIN EXTRA [Suspect]
     Indication: NASOPHARYNGITIS
     Route: 048
     Dates: start: 20130204, end: 20130207

REACTIONS (1)
  - Post procedural haemorrhage [Unknown]
